FAERS Safety Report 24985892 (Version 2)
Quarter: 2025Q1

REPORT INFORMATION
  Report Type: Spontaneous
  Country: CA (occurrence: CA)
  Receive Date: 20250219
  Receipt Date: 20250303
  Transmission Date: 20250409
  Serious: Yes (Other)
  Sender: PFIZER
  Company Number: CA-PFIZER INC-202500034625

PATIENT
  Age: 65 Year
  Sex: Male

DRUGS (2)
  1. METHOTREXATE SODIUM [Suspect]
     Active Substance: METHOTREXATE SODIUM
     Indication: Immunoglobulin G4 related disease
     Route: 065
     Dates: start: 202410
  2. PREDNISONE [Concomitant]
     Active Substance: PREDNISONE

REACTIONS (6)
  - Exophthalmos [Not Recovered/Not Resolved]
  - Treatment failure [Unknown]
  - Weight increased [Unknown]
  - Off label use [Unknown]
  - Gait disturbance [Unknown]
  - Dyspnoea [Unknown]
